FAERS Safety Report 5808756-8 (Version None)
Quarter: 2008Q3

REPORT INFORMATION
  Report Type: 
  Country: None (occurrence: None)
  Receive Date: 20080710
  Receipt Date: 20080710
  Transmission Date: 20090109
  Serious: No
  Sender: FDA-Public Use
  Company Number: None

PATIENT
  Age: 41 Year
  Sex: Female
  Weight: 90.7194 kg

DRUGS (1)
  1. ZOLPIDEM [Suspect]
     Indication: INSOMNIA
     Dosage: 1 DAILY

REACTIONS (3)
  - DRUG INEFFECTIVE [None]
  - INSOMNIA [None]
  - THERAPEUTIC RESPONSE UNEXPECTED WITH DRUG SUBSTITUTION [None]
